FAERS Safety Report 12507229 (Version 1)
Quarter: 2016Q2

REPORT INFORMATION
  Report Type: Spontaneous
  Country: US (occurrence: US)
  Receive Date: 20160629
  Receipt Date: 20160629
  Transmission Date: 20160815
  Serious: Yes (Disabling, Other)
  Sender: FDA-Public Use
  Company Number: US-UCBSA-2016014003

PATIENT
  Age: 27 Year
  Sex: Female
  Weight: 77.9 kg

DRUGS (1)
  1. NEUPRO [Suspect]
     Active Substance: ROTIGOTINE
     Indication: RESTLESS LEGS SYNDROME
     Dosage: 3 MG, ONCE DAILY (QD), (NO OF DOSES RECEIVED : 3)
     Dates: start: 20160315, end: 20160317

REACTIONS (5)
  - Circulatory collapse [Recovered/Resolved]
  - Nonspecific reaction [Unknown]
  - Blindness [Recovered/Resolved]
  - Nausea [Recovered/Resolved]
  - Dizziness [Recovered/Resolved]

NARRATIVE: CASE EVENT DATE: 2016
